FAERS Safety Report 6524710-5 (Version None)
Quarter: 2010Q1

REPORT INFORMATION
  Report Type: 
  Country: None (occurrence: None)
  Receive Date: 20100104
  Receipt Date: 20091217
  Transmission Date: 20100710
  Serious: Yes (Hospitalization, Other)
  Sender: FDA-Public Use
  Company Number: JP-BAYER-200913156BYL

PATIENT
  Age: 74 Year
  Sex: Male
  Weight: 59 kg

DRUGS (9)
  1. NEXAVAR [Suspect]
     Indication: HEPATIC NEOPLASM MALIGNANT
     Dosage: TOTAL DAILY DOSE: 400 MG  UNIT DOSE: 200 MG
     Route: 048
     Dates: start: 20090703, end: 20090710
  2. NEXAVAR [Suspect]
     Dosage: UNIT DOSE: 200 MG
     Route: 048
     Dates: start: 20090918
  3. NEXAVAR [Suspect]
     Dosage: TOTAL DAILY DOSE: 200 MG  UNIT DOSE: 200 MG
     Route: 048
     Dates: start: 20090710, end: 20090901
  4. LANDEL10_20 [Concomitant]
     Dosage: BEFORE NEXAVAR ADMINISTRATION
     Route: 048
     Dates: end: 20090701
  5. EPL [Concomitant]
     Route: 048
     Dates: start: 19980701
  6. URSO 250 [Concomitant]
     Route: 048
     Dates: start: 19990201
  7. NEO-MINOPHAGEN C [Concomitant]
     Route: 042
     Dates: start: 20000929
  8. PROTECADIN [Concomitant]
     Route: 048
     Dates: start: 20070221
  9. BENIDIPINE HYDROCHLORIDE [Concomitant]
     Route: 048
     Dates: start: 20090901

REACTIONS (9)
  - ALTERED STATE OF CONSCIOUSNESS [None]
  - CHEST PAIN [None]
  - CONSTIPATION [None]
  - INSOMNIA [None]
  - MUSCULAR WEAKNESS [None]
  - NASOPHARYNGITIS [None]
  - NAUSEA [None]
  - OEDEMA [None]
  - PLATELET COUNT DECREASED [None]
